FAERS Safety Report 22227297 (Version 1)
Quarter: 2023Q2

REPORT INFORMATION
  Report Type: Other
  Country: GB (occurrence: GB)
  Receive Date: 20230419
  Receipt Date: 20230419
  Transmission Date: 20230722
  Serious: Yes (Other)
  Sender: FDA-Public Use
  Company Number: GB-ASTELLAS-2023US011828

PATIENT
  Age: 57 Year
  Sex: Male

DRUGS (1)
  1. SOLIFENACIN [Suspect]
     Active Substance: SOLIFENACIN
     Indication: Micturition urgency
     Route: 065
     Dates: start: 20230227, end: 20230301

REACTIONS (3)
  - Chest pain [Unknown]
  - Gastrooesophageal reflux disease [Recovered/Resolved with Sequelae]
  - Influenza like illness [Unknown]

NARRATIVE: CASE EVENT DATE: 20230227
